FAERS Safety Report 21711918 (Version 1)
Quarter: 2022Q4

REPORT INFORMATION
  Report Type: Spontaneous
  Country: NO (occurrence: NO)
  Receive Date: 20221212
  Receipt Date: 20221212
  Transmission Date: 20230113
  Serious: Yes (Other)
  Sender: FDA-Public Use
  Company Number: None

PATIENT
  Age: 44 Year
  Sex: Female

DRUGS (4)
  1. DALFAMPRIDINE [Suspect]
     Active Substance: DALFAMPRIDINE
     Indication: Multiple sclerosis
     Dates: start: 20220221, end: 20220905
  2. HIPREX [Concomitant]
     Active Substance: METHENAMINE HIPPURATE
     Indication: Urinary tract infection
     Dosage: STRENGTH: 1 G
  3. NEURONTIN [Concomitant]
     Active Substance: GABAPENTIN
     Indication: Multiple sclerosis
     Dosage: STRENGTH: 300 MG
  4. LIORESAL [Concomitant]
     Active Substance: BACLOFEN
     Indication: Multiple sclerosis

REACTIONS (7)
  - Headache [Unknown]
  - Balance disorder [Unknown]
  - Multiple sclerosis [Recovered/Resolved]
  - Motor dysfunction [Unknown]
  - Bladder disorder [Unknown]
  - Muscular weakness [Unknown]
  - Fatigue [Unknown]

NARRATIVE: CASE EVENT DATE: 20220301
